FAERS Safety Report 4592238-8 (Version None)
Quarter: 2005Q1

REPORT INFORMATION
  Report Type: 
  Country: None (occurrence: None)
  Receive Date: 20050228
  Receipt Date: 20041021
  Transmission Date: 20050727
  Serious: No
  Sender: FDA-Public Use
  Company Number: US-BRISTOL-MYERS SQUIBB COMPANY-12745865

PATIENT
  Age: 40 Year
  Sex: Female

DRUGS (4)
  1. ABILIFY [Suspect]
     Indication: PSYCHOTIC DISORDER
     Dosage: DECREASED TO 25 MG/DAY
     Route: 048
     Dates: start: 20040220
  2. ABILIFY [Suspect]
     Indication: MAJOR DEPRESSION
     Dosage: DECREASED TO 25 MG/DAY
     Route: 048
     Dates: start: 20040220
  3. NEURONTIN [Concomitant]
  4. STRATTERA [Concomitant]

REACTIONS (1)
  - MUSCLE TWITCHING [None]
